FAERS Safety Report 6811260-1 (Version None)
Quarter: 2010Q2

REPORT INFORMATION
  Report Type: 
  Country: None (occurrence: None)
  Receive Date: 20100630
  Receipt Date: 20091124
  Transmission Date: 20101027
  Serious: Yes (Hospitalization)
  Sender: FDA-Public Use
  Company Number: US-AMGEN-KDL366107

PATIENT
  Sex: Male
  Weight: 136.2 kg

DRUGS (10)
  1. PROCRIT [Suspect]
     Indication: RENAL FAILURE CHRONIC
     Dates: start: 20090501, end: 20090901
  2. LOVENOX [Concomitant]
  3. ALLOPURINOL [Concomitant]
  4. HYTRIN [Concomitant]
  5. VASOTEC [Concomitant]
  6. VITAMIN D [Concomitant]
  7. NORVASC [Concomitant]
  8. ASPIRIN [Concomitant]
  9. LOVASTATIN [Concomitant]
  10. KAYEXALATE [Concomitant]

REACTIONS (2)
  - DEEP VEIN THROMBOSIS [None]
  - THERAPEUTIC RESPONSE DECREASED [None]
